FAERS Safety Report 7950357-X (Version None)
Quarter: 2011Q4

REPORT INFORMATION
  Report Type: 
  Country: None (occurrence: None)
  Receive Date: 20111130
  Receipt Date: 20111117
  Transmission Date: 20120403
  Serious: Yes (Hospitalization)
  Sender: FDA-Public Use
  Company Number: US-BAYER-2011-078657

PATIENT
  Age: 18 Year
  Sex: Female

DRUGS (3)
  1. YAZ [Suspect]
     Indication: CONTRACEPTION
     Dosage: UNK
     Dates: start: 20090101, end: 20090401
  2. SYNTHROID [Concomitant]
     Indication: HYPOTHYROIDISM
     Dosage: UNK
     Dates: start: 20090701
  3. YAZ [Suspect]
     Indication: ACNE

REACTIONS (9)
  - GALLBLADDER DISORDER [None]
  - PANIC ATTACK [None]
  - DEPRESSION [None]
  - PAIN [None]
  - POST CHOLECYSTECTOMY SYNDROME [None]
  - ANXIETY [None]
  - ANHEDONIA [None]
  - GASTROINTESTINAL DISORDER [None]
  - GASTRIC DISORDER [None]
